FAERS Safety Report 24857436 (Version 1)
Quarter: 2025Q1

REPORT INFORMATION
  Report Type: Spontaneous
  Country: US (occurrence: US)
  Receive Date: 20250117
  Receipt Date: 20250117
  Transmission Date: 20250409
  Serious: Yes (Other)
  Sender: PFIZER
  Company Number: US-PFIZER INC-202500010267

PATIENT
  Age: 37 Year
  Sex: Female

DRUGS (3)
  1. IBRANCE [Suspect]
     Active Substance: PALBOCICLIB
     Route: 048
     Dates: start: 20241215
  2. ANASTROZOLE [Concomitant]
     Active Substance: ANASTROZOLE
  3. CALCIUM\CHOLECALCIFEROL [Concomitant]
     Active Substance: CALCIUM\CHOLECALCIFEROL

REACTIONS (3)
  - Epistaxis [Not Recovered/Not Resolved]
  - Influenza [Recovering/Resolving]
  - Cough [Recovering/Resolving]
